FAERS Safety Report 9014341 (Version 1)
Quarter: 2013Q1

REPORT INFORMATION
  Report Type: Spontaneous
  Country: US (occurrence: US)
  Receive Date: 20130115
  Receipt Date: 20130115
  Transmission Date: 20140127
  Serious: No
  Sender: FDA-Public Use
  Company Number: US-PFIZER INC-2013016817

PATIENT
  Age: 58 Year
  Sex: Female
  Weight: 45.35 kg

DRUGS (2)
  1. NEURONTIN [Suspect]
     Indication: NECK PAIN
     Dosage: 100 MG, 3X/DAY
     Route: 048
     Dates: start: 2010
  2. NEURONTIN [Suspect]
     Indication: MUSCULOSKELETAL PAIN
     Dosage: 100 MG, 1X/DAY
     Route: 048

REACTIONS (2)
  - Somnolence [Unknown]
  - Fall [Unknown]
